FAERS Safety Report 4712827-7 (Version None)
Quarter: 2005Q3

REPORT INFORMATION
  Report Type: 
  Country: None (occurrence: None)
  Receive Date: 20050712
  Receipt Date: 20050712
  Transmission Date: 20060218
  Serious: Yes (Other)
  Sender: FDA-Public Use
  Company Number: None

PATIENT
  Age: 16 Year
  Sex: Male
  Weight: 61.2356 kg

DRUGS (2)
  1. CONCERTA [Suspect]
     Indication: ATTENTION DEFICIT/HYPERACTIVITY DISORDER
     Dosage: CONCERTA 18, 36, 54 ORAL
     Route: 048
     Dates: start: 20040401, end: 20050501
  2. . [Concomitant]

REACTIONS (3)
  - AGITATION [None]
  - ANXIETY [None]
  - DEPRESSION [None]
